FAERS Safety Report 17287812 (Version 3)
Quarter: 2020Q2

REPORT INFORMATION
  Report Type: Spontaneous
  Country: US (occurrence: US)
  Receive Date: 20200120
  Receipt Date: 20200604
  Transmission Date: 20200713
  Serious: Yes (Hospitalization, Other)
  Sender: FDA-Public Use
  Company Number: US-GLAXOSMITHKLINE-US2020AMR008840

PATIENT
  Age: 76 Year
  Sex: Female
  Weight: 77.46 kg

DRUGS (1)
  1. TRELEGY ELLIPTA [Suspect]
     Active Substance: FLUTICASONE FUROATE\UMECLIDINIUM BROMIDE\VILANTEROL TRIFENATATE
     Indication: CHRONIC OBSTRUCTIVE PULMONARY DISEASE
     Dosage: 100/62.5/25 MCG, 1 PUFF(S), QD
     Route: 055
     Dates: start: 2018, end: 2020

REACTIONS (6)
  - Spinal compression fracture [Recovered/Resolved with Sequelae]
  - Pain [Recovering/Resolving]
  - Osteoporosis [Unknown]
  - Back pain [Unknown]
  - Deep vein thrombosis [Unknown]
  - Surgery [Recovered/Resolved]

NARRATIVE: CASE EVENT DATE: 201902
